FAERS Safety Report 4867150-7 (Version None)
Quarter: 2005Q4

REPORT INFORMATION
  Report Type: 
  Country: None (occurrence: None)
  Receive Date: 20051222
  Receipt Date: 20051206
  Transmission Date: 20060501
  Serious: Yes (Hospitalization, Other)
  Sender: FDA-Public Use
  Company Number: US200512000962

PATIENT
  Sex: Female

DRUGS (1)
  1. HUMULIN 70/30 [Suspect]
     Indication: DIABETES MELLITUS
     Dates: start: 19920101

REACTIONS (10)
  - BLINDNESS [None]
  - BLOOD GLUCOSE INCREASED [None]
  - CATARACT OPERATION [None]
  - DRUG INEFFECTIVE [None]
  - GLAUCOMA [None]
  - HYPERTENSION [None]
  - INFECTION [None]
  - INJURY [None]
  - INSULIN RESISTANCE [None]
  - RETINAL DETACHMENT [None]
